FAERS Safety Report 15852688 (Version 2)
Quarter: 2019Q3

REPORT INFORMATION
  Report Type: Report from Study
  Country: IN (occurrence: IN)
  Receive Date: 20190122
  Receipt Date: 20190805
  Transmission Date: 20191004
  Serious: Yes (Death, Hospitalization)
  Sender: FDA-Public Use
  Company Number: PHHY2019IN011123

PATIENT
  Age: 49 Year
  Sex: Female
  Weight: 70 kg

DRUGS (2)
  1. TASIGNA [Suspect]
     Active Substance: NILOTINIB
     Dosage: 400 MG, BID
     Route: 048
     Dates: start: 20190115
  2. TASIGNA [Suspect]
     Active Substance: NILOTINIB
     Indication: CHRONIC MYELOID LEUKAEMIA
     Dosage: 400 MG, BID
     Route: 048
     Dates: start: 20190113

REACTIONS (6)
  - Cardiac disorder [Unknown]
  - Pulmonary congestion [Unknown]
  - Myocardial infarction [Fatal]
  - Internal injury [Unknown]
  - Blood bilirubin increased [Fatal]
  - Haemorrhage [Unknown]

NARRATIVE: CASE EVENT DATE: 20190113
